FAERS Safety Report 16854127 (Version 1)
Quarter: 2019Q3

REPORT INFORMATION
  Report Type: Spontaneous
  Country: US (occurrence: US)
  Receive Date: 20190802
  Receipt Date: 20190802
  Transmission Date: 20191005
  Serious: Yes (Hospitalization)
  Sender: FDA-Public Use
  Company Number: None

PATIENT
  Age: 34 Year
  Sex: Male

DRUGS (12)
  1. THIAMINE. [Concomitant]
     Active Substance: THIAMINE
  2. DIVALPROEX [Suspect]
     Active Substance: DIVALPROEX SODIUM
     Indication: SUICIDE ATTEMPT
     Route: 048
     Dates: start: 20190224, end: 20190225
  3. MIRTAZAPINE. [Concomitant]
     Active Substance: MIRTAZAPINE
  4. GABAPENTIN. [Concomitant]
     Active Substance: GABAPENTIN
  5. MULTIVITAMIN [Concomitant]
     Active Substance: VITAMINS
  6. FLUOXETINE [Concomitant]
     Active Substance: FLUOXETINE HYDROCHLORIDE
  7. RISPERIDONE. [Concomitant]
     Active Substance: RISPERIDONE
  8. FOLIC ACID. [Concomitant]
     Active Substance: FOLIC ACID
  9. HYDROXYZINE [Concomitant]
     Active Substance: HYDROXYZINE HYDROCHLORIDE
  10. IBUPROFEN. [Concomitant]
     Active Substance: IBUPROFEN
  11. QUETIAPINE. [Suspect]
     Active Substance: QUETIAPINE
     Route: 048
  12. ACETAMINOPHEN. [Concomitant]
     Active Substance: ACETAMINOPHEN

REACTIONS (11)
  - Abdominal pain [None]
  - Oxygen saturation decreased [None]
  - Electrocardiogram QT prolonged [None]
  - Depressed level of consciousness [None]
  - Aspiration [None]
  - Incoherent [None]
  - Stridor [None]
  - Intentional overdose [None]
  - Pneumonia [None]
  - Headache [None]
  - Sinus tachycardia [None]

NARRATIVE: CASE EVENT DATE: 20190226
